FAERS Safety Report 12904678 (Version 1)
Quarter: 2016Q4

REPORT INFORMATION
  Report Type: Spontaneous
  Country: US (occurrence: US)
  Receive Date: 20161102
  Receipt Date: 20161102
  Transmission Date: 20170207
  Serious: Yes (Hospitalization)
  Sender: FDA-Public Use
  Company Number: US-GLENMARK PHARMACEUTICALS INC, USA.-2016GMK024627

PATIENT
  Age: 21 Year
  Sex: Female

DRUGS (15)
  1. BETAMETHASONE DIPROPIONATE. [Suspect]
     Active Substance: BETAMETHASONE DIPROPIONATE
     Indication: MATERNAL THERAPY TO ENHANCE FOETAL LUNG MATURITY
     Dosage: 12 MG, TWO DOSES
     Route: 030
  2. VITAMIN K [Concomitant]
     Active Substance: PHYTONADIONE
     Indication: COAGULOPATHY
     Dosage: 10 MG, TID
     Route: 058
  3. CEFTRIAXONE. [Concomitant]
     Active Substance: CEFTRIAXONE
     Indication: PERITONITIS BACTERIAL
     Dosage: 1 G, QD
     Route: 042
  4. RISPERIDONE. [Concomitant]
     Active Substance: RISPERIDONE
     Indication: AGITATION
     Dosage: UNK
     Route: 065
  5. LACTULOSE. [Suspect]
     Active Substance: LACTULOSE
     Indication: PRODUCT USED FOR UNKNOWN INDICATION
     Dosage: UNK
     Route: 065
  6. RIFAXIMIN [Suspect]
     Active Substance: RIFAXIMIN
     Indication: PRODUCT USED FOR UNKNOWN INDICATION
     Dosage: UNK
     Route: 065
  7. ACYCLOVIR                          /00587301/ [Concomitant]
     Active Substance: ACYCLOVIR
     Indication: HERPES SIMPLEX
     Dosage: 400 MG, TID
     Route: 048
  8. PLATELETS [Concomitant]
     Active Substance: HUMAN PLATELET, ALLOGENIC
     Indication: PRODUCT USED FOR UNKNOWN INDICATION
     Dosage: 1 UT, UNK
     Route: 065
  9. PREDNISONE. [Concomitant]
     Active Substance: PREDNISONE
     Indication: AUTOIMMUNE DISORDER
  10. OMEPRAZOLE. [Suspect]
     Active Substance: OMEPRAZOLE
     Indication: PRODUCT USED FOR UNKNOWN INDICATION
     Dosage: UNK
     Route: 065
  11. VITAMIN K [Concomitant]
     Active Substance: PHYTONADIONE
     Indication: AUTOIMMUNE DISORDER
  12. PREDNISONE. [Concomitant]
     Active Substance: PREDNISONE
     Indication: COAGULOPATHY
     Dosage: 40 MG, TID
     Route: 048
  13. METRONIDAZOLE. [Concomitant]
     Active Substance: METRONIDAZOLE
     Indication: KLEBSIELLA INFECTION
     Route: 065
  14. VANCOMYCIN [Concomitant]
     Active Substance: VANCOMYCIN
     Indication: KLEBSIELLA INFECTION
     Dosage: UNK
     Route: 065
  15. RED BLOOD CELLS [Concomitant]
     Active Substance: HUMAN RED BLOOD CELL
     Indication: PRODUCT USED FOR UNKNOWN INDICATION
     Route: 065

REACTIONS (8)
  - Oedema peripheral [Unknown]
  - Caesarean section [Unknown]
  - Ascites [Unknown]
  - Pain in extremity [Unknown]
  - Abdominal pain [Unknown]
  - Exposure during pregnancy [Unknown]
  - Condition aggravated [Unknown]
  - Pain [Unknown]
